FAERS Safety Report 15664500 (Version 3)
Quarter: 2018Q4

REPORT INFORMATION
  Report Type: Spontaneous
  Country: JP (occurrence: JP)
  Receive Date: 20181128
  Receipt Date: 20181228
  Transmission Date: 20190205
  Serious: Yes (Other)
  Sender: FDA-Public Use
  Company Number: JP-009507513-1811JPN002484J

PATIENT
  Age: 71 Year
  Sex: Male

DRUGS (4)
  1. NILOTINIB HYDROCHLORIDE HYDRATE [Concomitant]
     Dosage: UNK
     Route: 065
  2. REPAGLINIDE. [Concomitant]
     Active Substance: REPAGLINIDE
     Indication: TYPE 2 DIABETES MELLITUS
     Dosage: 0.25 MILLIGRAM, QD
     Route: 065
  3. FEBUXOSTAT. [Concomitant]
     Active Substance: FEBUXOSTAT
     Dosage: UNK
     Route: 065
  4. JANUVIA [Suspect]
     Active Substance: SITAGLIPTIN PHOSPHATE
     Indication: TYPE 2 DIABETES MELLITUS
     Dosage: 25 MILLIGRAM
     Route: 048

REACTIONS (1)
  - Diabetes mellitus inadequate control [Unknown]
